FAERS Safety Report 23192197 (Version 1)
Quarter: 2023Q4

REPORT INFORMATION
  Report Type: Spontaneous
  Country: US (occurrence: None)
  Receive Date: 20231116
  Receipt Date: 20231116
  Transmission Date: 20240110
  Serious: No
  Sender: FDA-Public Use
  Company Number: None

PATIENT
  Age: 60 Year
  Sex: Male

DRUGS (26)
  1. PRALUENT [Suspect]
     Active Substance: ALIROCUMAB
     Route: 058
  2. AMLODIPINE BESYLATE [Concomitant]
     Active Substance: AMLODIPINE BESYLATE
  3. ANASPAZ [Concomitant]
     Active Substance: HYOSCYAMINE SULFATE
  4. ASPIRIN [Concomitant]
  5. GLIMEPIRIDE [Concomitant]
     Active Substance: GLIMEPIRIDE
  6. CLOPIDOGREL [Concomitant]
  7. COREG CR [Concomitant]
     Active Substance: CARVEDILOL PHOSPHATE
  8. CRANBERRY [Concomitant]
     Active Substance: CRANBERRY
  9. FLAXSEED OIL [Concomitant]
  10. GABAPENTIN [Concomitant]
  11. HUMALOG [Concomitant]
     Active Substance: INSULIN LISPRO
  12. KWIK PEN [Concomitant]
  13. ISOSORBIDE MONONITRATE [Concomitant]
     Active Substance: ISOSORBIDE MONONITRATE
  14. LANTUS SOLOSTAR [Concomitant]
     Active Substance: INSULIN GLARGINE
  15. LEVOTHYROXINE [Concomitant]
  16. METOCLOPRAMIDE [Concomitant]
     Active Substance: METOCLOPRAMIDE
  17. OMEPRAZOLE [Concomitant]
     Active Substance: OMEPRAZOLE
  18. PROBIOTIC [Concomitant]
  19. RANEXA [Concomitant]
     Active Substance: RANOLAZINE
  20. ROSUVASTATIN [Concomitant]
  21. CETIRIZINE [Concomitant]
  22. NITROGLYCERIN [Concomitant]
  23. SUCRALFATE [Concomitant]
  24. VITAMIN C [Concomitant]
     Active Substance: ASCORBIC ACID
  25. VITAMIN D [Concomitant]
  26. ZENPEP [Concomitant]
     Active Substance: PANCRELIPASE AMYLASE\PANCRELIPASE LIPASE\PANCRELIPASE PROTEASE

REACTIONS (2)
  - Muscle spasms [None]
  - Muscle spasms [None]

NARRATIVE: CASE EVENT DATE: 20231101
